FAERS Safety Report 16072947 (Version 3)
Quarter: 2019Q4

REPORT INFORMATION
  Report Type: Spontaneous
  Country: US (occurrence: US)
  Receive Date: 20190314
  Receipt Date: 20191204
  Transmission Date: 20200122
  Serious: No
  Sender: FDA-Public Use
  Company Number: US-PFIZER INC-2019107281

PATIENT
  Age: 48 Year
  Sex: Female

DRUGS (2)
  1. XELJANZ [Suspect]
     Active Substance: TOFACITINIB CITRATE
     Indication: COLITIS
     Dosage: 10 MG, UNK
  2. XELJANZ [Suspect]
     Active Substance: TOFACITINIB CITRATE
     Indication: GASTROENTERITIS
     Dosage: 5 MG, 2X/DAY
     Route: 048
     Dates: start: 201903

REACTIONS (5)
  - Tuberculin test positive [Unknown]
  - Fatigue [Unknown]
  - Off label use [Unknown]
  - Anaemia [Unknown]
  - Product use in unapproved indication [Unknown]
